FAERS Safety Report 17474757 (Version 1)
Quarter: 2020Q1

REPORT INFORMATION
  Report Type: Report from Study
  Country: GB (occurrence: GB)
  Receive Date: 20200228
  Receipt Date: 20200228
  Transmission Date: 20200409
  Serious: Yes (Hospitalization)
  Sender: FDA-Public Use
  Company Number: GB-JNJFOC-20190811325

PATIENT
  Age: 81 Year
  Sex: Female
  Weight: 68.8 kg

DRUGS (16)
  1. CEPHALEXIN                         /00145501/ [Concomitant]
     Active Substance: CEPHALEXIN
     Dates: start: 20140603
  2. CIPROFLOXACIN. [Concomitant]
     Active Substance: CIPROFLOXACIN
     Dates: start: 20180703
  3. ADCAL                              /00056901/ [Concomitant]
     Active Substance: CARBAZOCHROME
     Dates: start: 20130501
  4. NITROFURANTOIN. [Concomitant]
     Active Substance: NITROFURANTOIN
     Dates: start: 20130501
  5. TERBUTALINE [Concomitant]
     Active Substance: TERBUTALINE
     Dates: start: 20180703
  6. VAGIFEM [Concomitant]
     Active Substance: ESTRADIOL
     Dates: start: 20190305
  7. TRAMADOL. [Concomitant]
     Active Substance: TRAMADOL
     Dates: start: 20140601
  8. SALBUTAMOL [Concomitant]
     Active Substance: ALBUTEROL
     Dates: start: 20130501
  9. ZAPAIN [Concomitant]
     Active Substance: ACETAMINOPHEN\CODEINE PHOSPHATE
     Dates: start: 20170901
  10. VENTOLIN [Concomitant]
     Active Substance: ALBUTEROL SULFATE
     Dates: start: 20180703
  11. STELARA [Suspect]
     Active Substance: USTEKINUMAB
     Indication: PSORIASIS
     Route: 058
     Dates: start: 20120719
  12. COCODAMOL [Concomitant]
     Active Substance: ACETAMINOPHEN\CODEINE PHOSPHATE
     Dates: start: 20130501
  13. CYANOCOBALAMIN. [Concomitant]
     Active Substance: CYANOCOBALAMIN
     Dates: start: 20140203
  14. MIRABEGRON [Concomitant]
     Active Substance: MIRABEGRON
     Dates: start: 20150810
  15. ATROVENT [Concomitant]
     Active Substance: IPRATROPIUM BROMIDE
     Dates: start: 20140203
  16. ATORVASTATIN [Concomitant]
     Active Substance: ATORVASTATIN
     Dates: start: 20130501

REACTIONS (1)
  - Large intestine infection [Recovered/Resolved]

NARRATIVE: CASE EVENT DATE: 20190312
